FAERS Safety Report 19294418 (Version 1)
Quarter: 2021Q2

REPORT INFORMATION
  Report Type: Spontaneous
  Country: US (occurrence: US)
  Receive Date: 20210524
  Receipt Date: 20210524
  Transmission Date: 20210717
  Serious: Yes (Hospitalization)
  Sender: FDA-Public Use
  Company Number: None

PATIENT
  Sex: Female

DRUGS (3)
  1. ASHLYNA, PANTOPRAZOLE, TRAZODONE, FLUOXETINE, ATORVASTATIN [Concomitant]
  2. FENOFIBRATE, LEVOTHYROXINE, FLUTICASONE [Concomitant]
  3. STELARA [Suspect]
     Active Substance: USTEKINUMAB
     Indication: CROHN^S DISEASE
     Dosage: ?          OTHER FREQUENCY:EVERY 56 DAYS;?
     Route: 058
     Dates: start: 20170524

REACTIONS (2)
  - Therapy interrupted [None]
  - Intestinal obstruction [None]
